FAERS Safety Report 6867574-2 (Version None)
Quarter: 2010Q3

REPORT INFORMATION
  Report Type: 
  Country: None (occurrence: None)
  Receive Date: 20100722
  Receipt Date: 20100722
  Transmission Date: 20110219
  Serious: Yes (Hospitalization)
  Sender: FDA-Public Use
  Company Number: None

PATIENT
  Age: 34 Year
  Sex: Male

DRUGS (1)
  1. ZOSYN [Suspect]

REACTIONS (7)
  - AUTOIMMUNE DISORDER [None]
  - CHOLANGITIS SCLEROSING [None]
  - DIARRHOEA [None]
  - DRUG TOXICITY [None]
  - HAEMODIALYSIS [None]
  - RENAL FAILURE ACUTE [None]
  - RENAL TUBULAR NECROSIS [None]
